FAERS Safety Report 6645655-6 (Version None)
Quarter: 2010Q1

REPORT INFORMATION
  Report Type: 
  Country: None (occurrence: None)
  Receive Date: 20100319
  Receipt Date: 20100319
  Transmission Date: 20100710
  Serious: No
  Sender: FDA-Public Use
  Company Number: None

PATIENT
  Age: 85 Year
  Sex: Male
  Weight: 75.1 kg

DRUGS (1)
  1. ZOLEDRONIC ACID [Suspect]
     Dosage: 5 MG OTHER IV
     Route: 042
     Dates: start: 20100311, end: 20100311

REACTIONS (1)
  - BACK PAIN [None]
